FAERS Safety Report 11909452 (Version 4)
Quarter: 2016Q2

REPORT INFORMATION
  Report Type: Spontaneous
  Country: US (occurrence: US)
  Receive Date: 20160112
  Receipt Date: 20160520
  Transmission Date: 20160815
  Serious: Yes (Other)
  Sender: FDA-Public Use
  Company Number: US-TEVA-615119USA

PATIENT
  Age: 35 Year
  Sex: Female

DRUGS (1)
  1. ZECUITY [Suspect]
     Active Substance: SUMATRIPTAN SUCCINATE
     Route: 062

REACTIONS (4)
  - Application site erythema [Not Recovered/Not Resolved]
  - Application site dryness [Unknown]
  - Application site pain [Not Recovered/Not Resolved]
  - Application site burn [Recovered/Resolved]

NARRATIVE: CASE EVENT DATE: 20151126
